FAERS Safety Report 5236242-5 (Version None)
Quarter: 2007Q1

REPORT INFORMATION
  Report Type: 
  Country: None (occurrence: None)
  Receive Date: 20061208
  Receipt Date: 20050329
  Transmission Date: 20070707
  Serious: Yes (Other)
  Sender: FDA-Public Use
  Company Number: 2005UW04892

PATIENT
  Age: 50 Year
  Sex: Female
  Weight: 99.79 kg

DRUGS (8)
  1. CRESTOR [Suspect]
     Indication: BLOOD CHOLESTEROL INCREASED
     Dosage: 10 MG PO
     Route: 048
  2. HYDROCODONE BITARTRATE + ACETAMINOPHEN [Concomitant]
  3. EFFEXOR XR [Concomitant]
  4. DILTIAZEM [Concomitant]
  5. CLONAZEPAM [Concomitant]
  6. NEXIUM [Concomitant]
  7. PROMETHAZINE [Concomitant]
  8. NEURONTIN [Concomitant]

REACTIONS (1)
  - LIBIDO DECREASED [None]
